FAERS Safety Report 7380276-1 (Version None)
Quarter: 2011Q1

REPORT INFORMATION
  Report Type: 
  Country: None (occurrence: None)
  Receive Date: 20110318
  Receipt Date: 20110309
  Transmission Date: 20110831
  Serious: Yes (Hospitalization, Other)
  Sender: FDA-Public Use
  Company Number: 029043

PATIENT
  Age: 18 Year
  Sex: Female

DRUGS (2)
  1. KEPPRA [Suspect]
     Indication: EPILEPSY
     Dosage: 250 MG BID, ORAL; 500 MG BID ORAL
     Route: 048
     Dates: start: 20080101, end: 20080101
  2. KEPPRA [Suspect]
     Indication: EPILEPSY
     Dosage: 250 MG BID, ORAL; 500 MG BID ORAL
     Route: 048
     Dates: start: 20080101, end: 20080101

REACTIONS (3)
  - RASH [None]
  - COUGH [None]
  - BRONCHOSPASM [None]
